FAERS Safety Report 23632545 (Version 1)
Quarter: 2024Q1

REPORT INFORMATION
  Report Type: Spontaneous
  Country: US (occurrence: US)
  Receive Date: 20240314
  Receipt Date: 20240314
  Transmission Date: 20240410
  Serious: No
  Sender: FDA-Public Use
  Company Number: US-ENDO PHARMACEUTICALS INC-2023-001759

PATIENT
  Sex: Male
  Weight: 86.168 kg

DRUGS (5)
  1. XIAFLEX [Suspect]
     Active Substance: COLLAGENASE CLOSTRIDIUM HISTOLYTICUM
     Indication: Dupuytren^s contracture
     Dosage: UNK UNKNOWN, UNKNOWN (TREATMENT ONE)
     Route: 051
     Dates: start: 2022
  2. XIAFLEX [Suspect]
     Active Substance: COLLAGENASE CLOSTRIDIUM HISTOLYTICUM
     Dosage: UNK UNKNOWN, UNKNOWN (TREATMENT ONE)
     Route: 051
     Dates: start: 20221128
  3. ZOLOT [Concomitant]
     Indication: Product used for unknown indication
     Dosage: 100 MG, DAILY
     Route: 065
  4. LOSARTAN [Concomitant]
     Active Substance: LOSARTAN
     Indication: Hypertension
     Dosage: 20 MG, DAILY
     Route: 065
     Dates: start: 202205
  5. LIPITOR [Concomitant]
     Active Substance: ATORVASTATIN CALCIUM
     Indication: Lipids abnormal
     Dosage: 40 MG, DAILY
     Route: 065
     Dates: start: 2008

REACTIONS (7)
  - Dupuytren^s contracture [Unknown]
  - Condition aggravated [Unknown]
  - Joint noise [Unknown]
  - Peripheral swelling [Unknown]
  - Pain in extremity [Unknown]
  - Contusion [Unknown]
  - Drug ineffective [Unknown]

NARRATIVE: CASE EVENT DATE: 20220101
